FAERS Safety Report 10143057 (Version 1)
Quarter: 2014Q2

REPORT INFORMATION
  Report Type: Spontaneous
  Country: US (occurrence: US)
  Receive Date: 20140430
  Receipt Date: 20140430
  Transmission Date: 20141212
  Serious: Yes (Other)
  Sender: FDA-Public Use
  Company Number: US-AMGEN-USASP2014029989

PATIENT
  Age: 78 Year
  Sex: Female

DRUGS (4)
  1. PROLIA [Suspect]
     Indication: OSTEOPOROSIS
     Route: 065
  2. MUCINEX [Concomitant]
  3. CLORAZEPATE [Concomitant]
     Dosage: 3.5 MG, QD
  4. VITAMINS                           /00067501/ [Concomitant]

REACTIONS (8)
  - Dyspnoea [Unknown]
  - Dysphagia [Unknown]
  - Rash macular [Recovering/Resolving]
  - Pruritus generalised [Unknown]
  - Rash [Recovering/Resolving]
  - Urticaria [Unknown]
  - Erythema [Recovering/Resolving]
  - Malaise [Unknown]
